FAERS Safety Report 4983936-2 (Version None)
Quarter: 2006Q2

REPORT INFORMATION
  Report Type: 
  Country: None (occurrence: None)
  Receive Date: 20060426
  Receipt Date: 20051004
  Transmission Date: 20061013
  Serious: Yes (Hospitalization)
  Sender: FDA-Public Use
  Company Number: US-MERCK-0510USA03545

PATIENT
  Age: 53 Year
  Sex: Male
  Weight: 90 kg

DRUGS (6)
  1. VIOXX [Suspect]
     Indication: ARTHRALGIA
     Route: 048
     Dates: start: 20031001, end: 20040201
  2. VIOXX [Suspect]
     Route: 048
     Dates: start: 20020201, end: 20031001
  3. VIOXX [Suspect]
     Route: 048
     Dates: start: 20040201, end: 20040901
  4. VIOXX [Suspect]
     Indication: BACK PAIN
     Route: 048
     Dates: start: 20031001, end: 20040201
  5. VIOXX [Suspect]
     Route: 048
     Dates: start: 20020201, end: 20031001
  6. VIOXX [Suspect]
     Route: 048
     Dates: start: 20040201, end: 20040901

REACTIONS (2)
  - CARDIOVASCULAR DISORDER [None]
  - THROMBOSIS [None]
